FAERS Safety Report 13238608 (Version 1)
Quarter: 2017Q1

REPORT INFORMATION
  Report Type: Spontaneous
  Country: DE (occurrence: DE)
  Receive Date: 20170216
  Receipt Date: 20170216
  Transmission Date: 20170428
  Serious: Yes (Congenital Anomaly, Other)
  Sender: FDA-Public Use
  Company Number: DE-AUROBINDO-AUR-APL-2017-29690

PATIENT
  Age: 1 Year
  Sex: Male
  Weight: 2.72 kg

DRUGS (4)
  1. METOHEXAL                          /00376902/ [Suspect]
     Active Substance: METOPROLOL SUCCINATE
     Indication: HYPERTENSION
     Dosage: 142.5 MG /D DOSAGE HAD BEEN INCREASED FROM 47.5 MG/D IN THE FIRST TRIMESTER TO 142.5 MG/D IN 3RD
     Route: 064
     Dates: start: 20151212, end: 20160913
  2. FOLIO                              /00349401/ [Concomitant]
     Active Substance: CYANOCOBALAMIN\FOLIC ACID
     Indication: PROPHYLAXIS OF NEURAL TUBE DEFECT
     Dosage: 0.4 MG, ONCE A DAY
     Route: 064
  3. VENLAFAXINE [Suspect]
     Active Substance: VENLAFAXINE HYDROCHLORIDE
     Indication: ANXIETY DISORDER
     Dosage: 150 MG, ONCE A DAY
     Route: 064
     Dates: start: 20151212, end: 20160913
  4. MIRTAZAPINE 15MG [Suspect]
     Active Substance: MIRTAZAPINE
     Indication: ANXIETY DISORDER
     Dosage: 15 MG, ONCE A DAY
     Route: 064
     Dates: start: 20151212, end: 20160913

REACTIONS (4)
  - Foetal exposure during pregnancy [Not Recovered/Not Resolved]
  - Small for dates baby [Not Recovered/Not Resolved]
  - Polydactyly [Not Recovered/Not Resolved]
  - Syndactyly [Not Recovered/Not Resolved]

NARRATIVE: CASE EVENT DATE: 20160913
